FAERS Safety Report 11428268 (Version 1)
Quarter: 2015Q3

REPORT INFORMATION
  Report Type: Spontaneous
  Country: US (occurrence: US)
  Receive Date: 20150828
  Receipt Date: 20150828
  Transmission Date: 20151125
  Serious: No
  Sender: FDA-Public Use
  Company Number: US-ROCHE-1255803

PATIENT
  Sex: Male

DRUGS (7)
  1. PEGASYS [Suspect]
     Active Substance: PEGINTERFERON ALFA-2A
     Indication: HEPATITIS C
     Route: 065
  2. FENTANYL TRANSDERMAL SYSTEM [Concomitant]
     Active Substance: FENTANYL
  3. XANAX [Concomitant]
     Active Substance: ALPRAZOLAM
  4. OXYCONTIN [Concomitant]
     Active Substance: OXYCODONE HYDROCHLORIDE
  5. RIBAVIRIN. [Suspect]
     Active Substance: RIBAVIRIN
     Indication: HEPATITIS C
     Dosage: 1000 MG IN THREE DOSES DAILY (2/2/1)
     Route: 065
  6. TELAPREVIR [Suspect]
     Active Substance: TELAPREVIR
     Indication: HEPATITIS C
     Route: 065
  7. CLONAZEPAM. [Concomitant]
     Active Substance: CLONAZEPAM
     Route: 065

REACTIONS (14)
  - Mass [Unknown]
  - Constipation [Unknown]
  - Liver disorder [Unknown]
  - Feeding disorder [Unknown]
  - Delusion [Unknown]
  - Respiratory tract congestion [Unknown]
  - Abdominal distension [Unknown]
  - Eructation [Unknown]
  - Malaise [Unknown]
  - Dysgeusia [Unknown]
  - Pain [Unknown]
  - Insomnia [Unknown]
  - Paraesthesia [Unknown]
  - Diarrhoea [Unknown]
